FAERS Safety Report 8327596-1 (Version None)
Quarter: 2012Q2

REPORT INFORMATION
  Report Type: 
  Country: None (occurrence: None)
  Receive Date: 20120502
  Receipt Date: 20120418
  Transmission Date: 20120825
  Serious: Yes (Other)
  Sender: FDA-Public Use
  Company Number: CN-JNJFOC-20110404863

PATIENT
  Sex: Female

DRUGS (1)
  1. RISPERDAL [Suspect]
     Indication: HALLUCINATION
     Dosage: STRENTH 30 ML SOLUTION
     Route: 048
     Dates: start: 20110323, end: 20110411

REACTIONS (4)
  - ATTENTION DEFICIT/HYPERACTIVITY DISORDER [None]
  - SOMNOLENCE [None]
  - ASTHENIA [None]
  - DISTURBANCE IN ATTENTION [None]
